FAERS Safety Report 6855614-6 (Version None)
Quarter: 2010Q3

REPORT INFORMATION
  Report Type: 
  Country: None (occurrence: None)
  Receive Date: 20100719
  Receipt Date: 20100709
  Transmission Date: 20110219
  Serious: Yes (Other)
  Sender: FDA-Public Use
  Company Number: JP-JNJFOC-20100403653

PATIENT
  Sex: Male

DRUGS (5)
  1. DUROTEP [Suspect]
     Indication: PAIN
     Route: 062
  2. DUROTEP [Suspect]
     Route: 062
  3. NOVAMIN [Suspect]
     Indication: PROPHYLAXIS
     Route: 048
  4. CODEINE PHOSPHATE [Concomitant]
     Indication: PAIN
     Dosage: 100MG TO 200MG
     Route: 065
  5. MORPHINE HYDROCHLORIDE [Concomitant]
     Indication: PAIN
     Route: 065

REACTIONS (3)
  - RESTLESSNESS [None]
  - SUICIDAL IDEATION [None]
  - TREATMENT NONCOMPLIANCE [None]
